FAERS Safety Report 25402674 (Version 3)
Quarter: 2025Q4

REPORT INFORMATION
  Report Type: Spontaneous
  Country: US (occurrence: US)
  Receive Date: 20250605
  Receipt Date: 20251203
  Transmission Date: 20260118
  Serious: Yes (Other)
  Sender: PFIZER
  Company Number: US-PFIZER INC-202500066853

PATIENT
  Age: 80 Year
  Sex: Female
  Weight: 67.1 kg

DRUGS (1)
  1. IBRANCE [Suspect]
     Active Substance: PALBOCICLIB
     Indication: Breast cancer female
     Dosage: TAKE 1 TABLET (100 MG) DAILY FOR 21 DAYS, FOLLOWED BY 7 DAYS OFF
     Route: 048

REACTIONS (5)
  - Pulmonary oedema [Unknown]
  - Cardiac disorder [Unknown]
  - White blood cell count abnormal [Unknown]
  - White blood cell count decreased [Unknown]
  - Eczema [Unknown]
